FAERS Safety Report 17492108 (Version 3)
Quarter: 2020Q1

REPORT INFORMATION
  Report Type: Spontaneous
  Country: BE (occurrence: BE)
  Receive Date: 20200304
  Receipt Date: 20200316
  Transmission Date: 20200409
  Serious: Yes (Hospitalization, Other)
  Sender: FDA-Public Use
  Company Number: BE-SA-2020SA050282

PATIENT
  Age: 69 Year
  Sex: Female
  Weight: 58.9 kg

DRUGS (9)
  1. DOCETAXEL. [Suspect]
     Active Substance: DOCETAXEL
     Indication: ADENOCARCINOMA GASTRIC
     Dosage: 87.5 MG
  2. ACETYLSALICYLIC ACID [Concomitant]
     Active Substance: ASPIRIN
  3. OXALIPLATIN. [Suspect]
     Active Substance: OXALIPLATIN
     Indication: ADENOCARCINOMA GASTRIC
     Dosage: 147.58 MG, QCY
  4. TINZAPARIN [Concomitant]
     Active Substance: TINZAPARIN
  5. LORAZEPAM. [Concomitant]
     Active Substance: LORAZEPAM
  6. 5-FLUOROURACIL [FLUOROURACIL] [Suspect]
     Active Substance: FLUOROURACIL
     Indication: ADENOCARCINOMA GASTRIC
     Dosage: 4200 MG
  7. AMIODARONE [Concomitant]
     Active Substance: AMIODARONE
  8. FOLINIC ACID [Suspect]
     Active Substance: LEUCOVORIN
     Indication: ADENOCARCINOMA GASTRIC
     Dosage: 350 MG
  9. HYDRALAZINE [Concomitant]
     Active Substance: HYDRALAZINE HYDROCHLORIDE

REACTIONS (17)
  - Blindness [Recovered/Resolved with Sequelae]
  - Hypertension [Recovered/Resolved with Sequelae]
  - Vasogenic cerebral oedema [Recovered/Resolved with Sequelae]
  - Neck pain [Recovered/Resolved with Sequelae]
  - C-reactive protein increased [Recovered/Resolved with Sequelae]
  - Acute kidney injury [Unknown]
  - Necrosis [Recovered/Resolved with Sequelae]
  - Headache [Recovered/Resolved with Sequelae]
  - Muscular weakness [Recovered/Resolved with Sequelae]
  - Blood albumin decreased [Recovered/Resolved with Sequelae]
  - Blood brain barrier defect [Recovered/Resolved with Sequelae]
  - Central nervous system lesion [Recovered/Resolved with Sequelae]
  - Pneumonia pneumococcal [Unknown]
  - Septic shock [Unknown]
  - Posterior reversible encephalopathy syndrome [Recovered/Resolved with Sequelae]
  - Cortical laminar necrosis [Recovered/Resolved with Sequelae]
  - Cerebral small vessel ischaemic disease [Recovered/Resolved with Sequelae]
